FAERS Safety Report 8764764 (Version 1)
Quarter: 2012Q4

REPORT INFORMATION
  Report Type: 
  Country: CN (occurrence: CN)
  Receive Date: 20120831
  Receipt Date: 20120831
  Transmission Date: 20130627
  Serious: Yes (Other)
  Sender: FDA-Public Use
  Company Number: CN-ROCHE-1110877

PATIENT
  Age: 0 Year
  Sex: Male
  Weight: 5.5 kg

DRUGS (1)
  1. ROCEPHIN [Suspect]
     Indication: PNEUMONIA BACTERIAL
     Route: 040
     Dates: start: 20090702, end: 20090702

REACTIONS (4)
  - Cyanosis [Recovering/Resolving]
  - Rash [Recovering/Resolving]
  - Tachycardia [Recovering/Resolving]
  - Respiratory rate increased [Unknown]
